FAERS Safety Report 4491335-5 (Version None)
Quarter: 2004Q4

REPORT INFORMATION
  Report Type: 
  Country: None (occurrence: None)
  Receive Date: 20041101
  Receipt Date: 20041101
  Transmission Date: 20050328
  Serious: Yes (Hospitalization)
  Sender: FDA-Public Use
  Company Number: None

PATIENT
  Age: 45 Year
  Sex: Female
  Weight: 99.7913 kg

DRUGS (1)
  1. BACTRIM [Suspect]
     Indication: SINUS DISORDER
     Dosage: ORAL
     Route: 048
     Dates: start: 20041220, end: 20041226

REACTIONS (1)
  - STEVENS-JOHNSON SYNDROME [None]
